FAERS Safety Report 10457064 (Version 1)
Quarter: 2014Q3

REPORT INFORMATION
  Report Type: Spontaneous
  Country: US (occurrence: None)
  Receive Date: 20140915
  Receipt Date: 20140915
  Transmission Date: 20150326
  Serious: Yes (Other)
  Sender: FDA-Public Use
  Company Number: None

PATIENT
  Age: 43 Year
  Sex: Female
  Weight: 120.2 kg

DRUGS (2)
  1. DOXEPIN [Suspect]
     Active Substance: DOXEPIN
     Indication: PAIN
     Dosage: 250 MG PER 500 ML OR 1 G 25 MG
     Dates: start: 20140822, end: 20140823
  2. DOXEPIN [Suspect]
     Active Substance: DOXEPIN
     Dosage: 250 MG PER 500 ML OR 1 G 25 MG
     Dates: start: 20140822, end: 20140823

REACTIONS (2)
  - Dysphagia [None]
  - Throat tightness [None]

NARRATIVE: CASE EVENT DATE: 20140822
